FAERS Safety Report 16294623 (Version 1)
Quarter: 2019Q2

REPORT INFORMATION
  Report Type: Spontaneous
  Country: US (occurrence: US)
  Receive Date: 20190509
  Receipt Date: 20190509
  Transmission Date: 20190711
  Serious: No
  Sender: FDA-Public Use
  Company Number: US-ROCHE-2110425

PATIENT
  Sex: Male
  Weight: 93.07 kg

DRUGS (3)
  1. ESBRIET [Suspect]
     Active Substance: PIRFENIDONE
     Indication: IDIOPATHIC PULMONARY FIBROSIS
     Dosage: 267MG 3 TIMES DAY FOR FIRST WEEK, ONGOING: NO
     Route: 048
     Dates: start: 201711
  2. ESBRIET [Suspect]
     Active Substance: PIRFENIDONE
     Dosage: 9 PILLS A DAY ;ONGOING: NO
     Route: 048
     Dates: start: 2017, end: 201801
  3. ESBRIET [Suspect]
     Active Substance: PIRFENIDONE
     Dosage: 6 PILLS A DAY FOR THE SECOND WEEK ;ONGOING: NO
     Route: 048
     Dates: start: 2017

REACTIONS (5)
  - Constipation [Not Recovered/Not Resolved]
  - Blood pressure decreased [Recovering/Resolving]
  - Diarrhoea [Recovered/Resolved]
  - Abdominal discomfort [Recovered/Resolved]
  - Nausea [Recovered/Resolved]

NARRATIVE: CASE EVENT DATE: 2017
